FAERS Safety Report 16512926 (Version 3)
Quarter: 2024Q1

REPORT INFORMATION
  Report Type: Spontaneous
  Country: US (occurrence: US)
  Receive Date: 20190702
  Receipt Date: 20240103
  Transmission Date: 20240410
  Serious: Yes (Other)
  Sender: FDA-Public Use
  Company Number: US-PFIZER INC-2019281430

PATIENT
  Age: 58 Year
  Sex: Female

DRUGS (2)
  1. IBRANCE [Suspect]
     Active Substance: PALBOCICLIB
     Indication: Breast cancer female
     Dosage: 100 MG
  2. IBRANCE [Suspect]
     Active Substance: PALBOCICLIB
     Dosage: TAKE 1 CAPSULE PO (PER ORAL) ONE TIME EACH DAY
     Route: 048

REACTIONS (6)
  - Mastoiditis [Unknown]
  - Cerebral atrophy [Unknown]
  - Eustachian tube dysfunction [Unknown]
  - Headache [Unknown]
  - Arteriosclerosis [Unknown]
  - Retention cyst [Unknown]
